FAERS Safety Report 4950048-3 (Version None)
Quarter: 2006Q1

REPORT INFORMATION
  Report Type: 
  Country: None (occurrence: None)
  Receive Date: 20060320
  Receipt Date: 20060320
  Transmission Date: 20060701
  Serious: Yes (Hospitalization)
  Sender: FDA-Public Use
  Company Number: None

PATIENT
  Age: 80 Year
  Sex: Female
  Weight: 64.4 kg

DRUGS (1)
  1. WARFARIN SODIUM [Suspect]
     Dosage: MONITORED AND DISPENS IN COMMUNITY

REACTIONS (3)
  - BREAST HAEMATOMA [None]
  - ECCHYMOSIS [None]
  - INTERNATIONAL NORMALISED RATIO INCREASED [None]
